FAERS Safety Report 10900774 (Version 1)
Quarter: 2015Q1

REPORT INFORMATION
  Report Type: Spontaneous
  Country: FR (occurrence: FR)
  Receive Date: 20150310
  Receipt Date: 20150310
  Transmission Date: 20150721
  Serious: Yes (Hospitalization)
  Sender: FDA-Public Use
  Company Number: FR-SA-2015SA027808

PATIENT
  Age: 53 Year
  Sex: Male

DRUGS (7)
  1. GARDENAL [Suspect]
     Active Substance: PHENOBARBITAL
     Indication: EPILEPSY
     Dosage: TAKEN FROM: 20 YEARS
     Route: 048
  2. LASILIX FAIBLE [Suspect]
     Active Substance: FUROSEMIDE
     Route: 048
     Dates: start: 2011
  3. TERCIAN [Concomitant]
     Active Substance: CYAMEMAZINE
     Indication: ABNORMAL BEHAVIOUR
     Route: 048
  4. NOCTAMIDE [Concomitant]
     Active Substance: LORMETAZEPAM
     Route: 048
  5. DEPAKINE CHRONO [Suspect]
     Active Substance: VALPROATE SODIUM
     Indication: EPILEPSY
     Dosage: TAKEN FROM: 20 YEARS
     Route: 048
  6. DIPIPERON [Concomitant]
     Active Substance: PIPAMPERONE
     Route: 048
  7. SALVACYL LP [Suspect]
     Active Substance: TRIPTORELIN
     Indication: SEXUAL DYSFUNCTION
     Dosage: FREQUENCY: EVERY 12 WEEKS
     Route: 030
     Dates: start: 201407, end: 201412

REACTIONS (3)
  - Osteoporotic fracture [Recovered/Resolved with Sequelae]
  - Osteoporosis [Not Recovered/Not Resolved]
  - Femoral neck fracture [None]

NARRATIVE: CASE EVENT DATE: 20150209
